FAERS Safety Report 5330591-8 (Version None)
Quarter: 2007Q2

REPORT INFORMATION
  Report Type: 
  Country: None (occurrence: None)
  Receive Date: 20070516
  Receipt Date: 20070510
  Transmission Date: 20071010
  Serious: Yes (Other)
  Sender: FDA-Public Use
  Company Number: GXKR2003GB00473

PATIENT
  Sex: Male
  Weight: 4.6 kg

DRUGS (4)
  1. FUROSEMIDE [Suspect]
     Indication: HEART DISEASE CONGENITAL
     Dosage: 1 MG/KG/DAY
  2. ACETYLSALCYLIC ACID (NGX) (ACETYLSALICYLIC ACID) [Suspect]
     Indication: HEART DISEASE CONGENITAL
     Dosage: 5 MG/KG/DAY
  3. SPIRONOLACTONE [Suspect]
     Dosage: 0.4 MG/KG/DAY
  4. DIAZOXIDE [Suspect]
     Indication: HYPERINSULINAEMIA
     Dosage: 1.5-5MG/KG/DAY

REACTIONS (3)
  - DRUG INTERACTION [None]
  - HYPERGLYCAEMIA [None]
  - HYPOGLYCAEMIA [None]
